FAERS Safety Report 7608436-2 (Version None)
Quarter: 2011Q3

REPORT INFORMATION
  Report Type: 
  Country: None (occurrence: None)
  Receive Date: 20110714
  Receipt Date: 20110701
  Transmission Date: 20111222
  Serious: No
  Sender: FDA-Public Use
  Company Number: US-B.I. PHARMACEUTICALS,INC./RIDGEFIELD-2011-BP-16814BP

PATIENT
  Age: 80 Year
  Sex: Female
  Weight: 68.04 kg

DRUGS (10)
  1. FOSAMAX [Concomitant]
     Indication: OSTEOPOROSIS
  2. PRADAXA [Suspect]
     Indication: ATRIAL FIBRILLATION
     Dosage: 300 MG
     Route: 048
     Dates: start: 20110614
  3. LEVOXYL [Concomitant]
     Indication: THYROID DISORDER
  4. TOPROL-XL [Concomitant]
     Indication: HYPERTENSION
     Dosage: 100 MG
  5. SIMVASTATIN [Concomitant]
     Indication: BLOOD CHOLESTEROL INCREASED
     Dosage: 40 MG
  6. LISINOPRIL [Concomitant]
     Indication: HYPERTENSION
     Dosage: 20 MG
  7. HYDROCHLOROTHIAZIDE [Concomitant]
     Indication: FLUID RETENTION
  8. MULTI-VITAMIN [Concomitant]
     Indication: SUPPLEMENTATION THERAPY
  9. FELODIPINE [Concomitant]
     Indication: HYPERTENSION
     Dosage: 10 MG
  10. VITAMIN D [Concomitant]
     Indication: SUPPLEMENTATION THERAPY

REACTIONS (4)
  - DECREASED APPETITE [None]
  - ATRIAL FIBRILLATION [None]
  - POLLAKIURIA [None]
  - FATIGUE [None]
